FAERS Safety Report 7594297-7 (Version None)
Quarter: 2011Q3

REPORT INFORMATION
  Report Type: 
  Country: None (occurrence: None)
  Receive Date: 20110706
  Receipt Date: 20110627
  Transmission Date: 20111222
  Serious: Yes (Hospitalization)
  Sender: FDA-Public Use
  Company Number: US-ASTRAZENECA-2011SE38440

PATIENT
  Age: 42 Year
  Sex: Male
  Weight: 94.8 kg

DRUGS (2)
  1. CELEXA [Concomitant]
  2. SEROQUEL XR [Suspect]
     Route: 048

REACTIONS (1)
  - FOOT FRACTURE [None]
